FAERS Safety Report 12566764 (Version 2)
Quarter: 2016Q3

REPORT INFORMATION
  Report Type: Spontaneous
  Country: PL (occurrence: PL)
  Receive Date: 20160718
  Receipt Date: 20160718
  Transmission Date: 20161109
  Serious: Yes (Hospitalization, Other)
  Sender: FDA-Public Use
  Company Number: PL-JUBILANT CADISTA PHARMACEUTICALS-2016JUB00267

PATIENT
  Age: 62 Year

DRUGS (12)
  1. DIGOXIN. [Concomitant]
     Active Substance: DIGOXIN
     Dosage: 0.125 MG, 4X/DAY
     Route: 048
  2. OMEPRAZOLE. [Concomitant]
     Active Substance: OMEPRAZOLE
     Dosage: 40 MG, 4X/DAY
     Route: 048
  3. ST. JOHN^S WORT [Concomitant]
     Active Substance: ST. JOHN^S WORT
     Route: 048
  4. METOPROLOL. [Concomitant]
     Active Substance: METOPROLOL
     Dosage: 25 MG, 3X/DAY
     Route: 048
  5. CLEMASTINUM [Concomitant]
     Active Substance: CLEMASTINE FUMARATE
     Dosage: 1 MG, 4X/DAY
     Route: 048
  6. MAALOX ANTACID [Concomitant]
     Active Substance: ALUMINUM HYDROXIDE\DIMETHICONE\MAGNESIUM HYDROXIDE
     Dosage: 1 DOSAGE UNITS, 3X/DAY
     Route: 048
  7. SPIRONOLACTONE. [Concomitant]
     Active Substance: SPIRONOLACTONE
     Dosage: 25 MG, 4X/DAY
     Route: 048
  8. CARBAMAZEPINE. [Suspect]
     Active Substance: CARBAMAZEPINE
     Indication: EPILEPSY
     Dosage: 400 MG, 2X/DAY
     Route: 048
     Dates: start: 2013, end: 2013
  9. DEXAMETHASONE. [Suspect]
     Active Substance: DEXAMETHASONE
     Dosage: 2 MG, 3X/DAY
     Route: 048
     Dates: start: 2013, end: 2013
  10. FUROSEMIDE. [Concomitant]
     Active Substance: FUROSEMIDE
     Dosage: 40 MG, 4X/DAY
     Route: 048
  11. ENOXAPARIN [Concomitant]
     Active Substance: ENOXAPARIN
     Dosage: 100 MG, 4X/DAY
     Route: 058
  12. XEROSTOM [Concomitant]
     Active Substance: SODIUM FLUORIDE
     Route: 048

REACTIONS (4)
  - Staphylococcal sepsis [Unknown]
  - Toxic epidermal necrolysis [Recovering/Resolving]
  - Staphylococcal infection [Unknown]
  - Hypoalbuminaemia [Recovering/Resolving]

NARRATIVE: CASE EVENT DATE: 2013
